FAERS Safety Report 25343537 (Version 1)
Quarter: 2025Q2

REPORT INFORMATION
  Report Type: Spontaneous
  Country: US (occurrence: US)
  Receive Date: 20250521
  Receipt Date: 20250521
  Transmission Date: 20250716
  Serious: Yes (Other)
  Sender: FRESENIUS KABI
  Company Number: US-FreseniusKabi-FK202507065

PATIENT
  Age: 11 Year
  Sex: Male

DRUGS (31)
  1. PENTAMIDINE [Suspect]
     Active Substance: PENTAMIDINE
     Indication: Product used for unknown indication
     Dosage: DOSE UNKNOWN
     Route: 042
  2. PENTAMIDINE [Suspect]
     Active Substance: PENTAMIDINE
     Route: 065
  3. JAKAFI [Suspect]
     Active Substance: RUXOLITINIB
     Indication: Product used for unknown indication
     Dosage: FORM OF ADMIN: TABLET?THERAPY DURATION: UNKNOWN
     Route: 065
  4. JAKAFI [Suspect]
     Active Substance: RUXOLITINIB
     Dosage: FORM OF ADMIN: TABLET?THERAPY DURATION: UNKNOWN
     Route: 065
     Dates: start: 202112
  5. CANAKINUMAB [Suspect]
     Active Substance: CANAKINUMAB
     Indication: Still^s disease
     Route: 065
     Dates: start: 201510, end: 201605
  6. TACROLIMUS [Suspect]
     Active Substance: TACROLIMUS
     Indication: Product used for unknown indication
     Route: 065
     Dates: start: 201606
  7. TACROLIMUS [Suspect]
     Active Substance: TACROLIMUS
     Route: 065
     Dates: start: 201904
  8. TACROLIMUS [Suspect]
     Active Substance: TACROLIMUS
     Route: 065
  9. PREDNISOLONE [Suspect]
     Active Substance: PREDNISOLONE
     Indication: Product used for unknown indication
     Route: 065
     Dates: end: 2019
  10. PREDNISOLONE [Suspect]
     Active Substance: PREDNISOLONE
     Dosage: THERAPY DURATION: UNKNOWN
     Route: 065
  11. PREDNISOLONE [Suspect]
     Active Substance: PREDNISOLONE
     Route: 065
     Dates: start: 202007
  12. PREDNISOLONE [Suspect]
     Active Substance: PREDNISOLONE
     Dosage: THERAPY DURATION: UNKNOWN
     Route: 065
     Dates: start: 20210901
  13. PREDNISOLONE [Suspect]
     Active Substance: PREDNISOLONE
     Dosage: THERAPY DURATION: UNKNOWN
     Route: 065
     Dates: start: 20211022
  14. PREDNISOLONE [Suspect]
     Active Substance: PREDNISOLONE
     Dosage: THERAPY DURATION: UNKNOWN
     Route: 065
  15. PREDNISOLONE [Suspect]
     Active Substance: PREDNISOLONE
     Route: 065
     Dates: end: 2016
  16. METHYLPREDNISOLONE [Suspect]
     Active Substance: METHYLPREDNISOLONE
     Indication: Product used for unknown indication
     Dosage: THERAPY DURATION: UNKNOWN
     Route: 042
  17. METHYLPREDNISOLONE [Suspect]
     Active Substance: METHYLPREDNISOLONE
     Dosage: THERAPY DURATION: UNKNOWN
     Route: 065
     Dates: start: 201806, end: 201809
  18. ANAKINRA [Suspect]
     Active Substance: ANAKINRA
     Indication: Product used for unknown indication
     Route: 065
     Dates: start: 2016
  19. ANAKINRA [Suspect]
     Active Substance: ANAKINRA
     Dosage: THERAPY DURATION: UNKNOWN
     Route: 065
     Dates: start: 201712
  20. ANAKINRA [Suspect]
     Active Substance: ANAKINRA
     Dosage: DOSE UNKNOWN?THERAPY DURATION: UNKNOWN
     Route: 065
     Dates: start: 201904
  21. ANAKINRA [Suspect]
     Active Substance: ANAKINRA
     Dosage: DOSE UNKNOWN?THERAPY DURATION: UNKNOWN
     Route: 065
     Dates: start: 202104
  22. ANAKINRA [Suspect]
     Active Substance: ANAKINRA
     Dosage: DOSE UNKNOWN?THERAPY DURATION: UNKNOWN
     Route: 065
     Dates: start: 20211022
  23. ANAKINRA [Suspect]
     Active Substance: ANAKINRA
     Dosage: THERAPY DURATION: UNKNOWN
     Route: 065
  24. ANAKINRA [Suspect]
     Active Substance: ANAKINRA
     Route: 065
  25. TOFACITINIB [Suspect]
     Active Substance: TOFACITINIB
     Indication: Product used for unknown indication
     Route: 065
  26. TOFACITINIB [Suspect]
     Active Substance: TOFACITINIB
     Dosage: DOSE UNKNOWN?THERAPY DURATION: UNKNOWN
     Route: 065
     Dates: start: 20210901
  27. ATOVAQUONE [Suspect]
     Active Substance: ATOVAQUONE
     Indication: Product used for unknown indication
     Route: 065
  28. CYCLOPHOSPHAMIDE [Concomitant]
     Active Substance: CYCLOPHOSPHAMIDE
     Indication: Product used for unknown indication
     Dates: start: 201508
  29. DOXORUBICIN HYDROCHLORIDE [Concomitant]
     Active Substance: DOXORUBICIN HYDROCHLORIDE
     Indication: Product used for unknown indication
     Dates: start: 201508
  30. PREDNISONE [Concomitant]
     Active Substance: PREDNISONE
     Indication: Product used for unknown indication
     Dates: start: 201508
  31. VINCRISTINE SULFATE [Concomitant]
     Active Substance: VINCRISTINE SULFATE
     Indication: Product used for unknown indication
     Dates: start: 201508

REACTIONS (16)
  - Gastrointestinal disorder [Unknown]
  - Haemophagocytic lymphohistiocytosis [Unknown]
  - Rash [Unknown]
  - Pyrexia [Unknown]
  - Viral infection [Unknown]
  - Haematochezia [Unknown]
  - Colitis [Unknown]
  - Dactylitis [Unknown]
  - Laboratory test abnormal [Unknown]
  - Inflammatory bowel disease [Unknown]
  - Red blood cell sedimentation rate increased [Unknown]
  - Dermatitis atopic [Not Recovered/Not Resolved]
  - Condition aggravated [Unknown]
  - Disease progression [Not Recovered/Not Resolved]
  - Serum ferritin increased [Unknown]
  - Off label use [Unknown]

NARRATIVE: CASE EVENT DATE: 20160601
